FAERS Safety Report 10024575 (Version 1)
Quarter: 2014Q1

REPORT INFORMATION
  Report Type: Spontaneous
  Country: DE (occurrence: DE)
  Receive Date: 20140320
  Receipt Date: 20140320
  Transmission Date: 20141002
  Serious: Yes (Other)
  Sender: FDA-Public Use
  Company Number: DE-SHIRE-DE201400475

PATIENT
  Age: 17 Year
  Sex: Male

DRUGS (4)
  1. ELVANSE [Suspect]
     Indication: PRODUCT USED FOR UNKNOWN INDICATION
     Dosage: 130 MG, 1X/DAY:QD (IN THE MORNING)
     Route: 065
  2. ELVANSE [Suspect]
     Dosage: 100 MG, 1X/DAY:QD (NOON)
     Route: 048
  3. ELVANSE [Suspect]
     Dosage: 100 MG, 1X/DAY:QD (EVENINGS)
     Route: 048
  4. RISPERDON [Concomitant]
     Indication: PRODUCT USED FOR UNKNOWN INDICATION
     Dosage: UNK, UNKNOWN
     Route: 065

REACTIONS (3)
  - Appendicitis [Unknown]
  - Prescribed overdose [Unknown]
  - Drug prescribing error [Unknown]
